FAERS Safety Report 20394008 (Version 1)
Quarter: 2022Q1

REPORT INFORMATION
  Report Type: Spontaneous
  Country: CN (occurrence: CN)
  Receive Date: 20220129
  Receipt Date: 20220129
  Transmission Date: 20220424
  Serious: Yes (Other)
  Sender: FDA-Public Use
  Company Number: CN-ABBVIE-22K-035-4253544-00

PATIENT
  Age: 36 Year
  Sex: Female
  Weight: 44 kg

DRUGS (2)
  1. VALPROATE SODIUM [Suspect]
     Active Substance: VALPROATE SODIUM
     Indication: Coordination abnormal
     Route: 048
     Dates: start: 20181113, end: 20181121
  2. CAFFEIC ACID [Concomitant]
     Active Substance: CAFFEIC ACID
     Indication: Product used for unknown indication

REACTIONS (1)
  - Platelet count decreased [Recovering/Resolving]

NARRATIVE: CASE EVENT DATE: 20181116
